FAERS Safety Report 10388211 (Version 2)
Quarter: 2014Q3

REPORT INFORMATION
  Report Type: Spontaneous
  Country: FR (occurrence: FR)
  Receive Date: 20140815
  Receipt Date: 20140909
  Transmission Date: 20150326
  Serious: Yes (Death, Congenital Anomaly)
  Sender: FDA-Public Use
  Company Number: FR-GLAXOSMITHKLINE-B1022127B

PATIENT
  Sex: Female

DRUGS (4)
  1. IMIGRANE [Suspect]
     Active Substance: SUMATRIPTAN SUCCINATE
     Indication: PRODUCT USED FOR UNKNOWN INDICATION
     Route: 064
  2. NOCERTONE [Suspect]
     Active Substance: OXETORONE
     Indication: PRODUCT USED FOR UNKNOWN INDICATION
     Route: 064
  3. ZOMIG [Suspect]
     Active Substance: ZOLMITRIPTAN
     Indication: PRODUCT USED FOR UNKNOWN INDICATION
     Route: 064
  4. SEROPRAM [Suspect]
     Active Substance: CITALOPRAM HYDROBROMIDE
     Indication: PRODUCT USED FOR UNKNOWN INDICATION
     Dosage: 20MG TWICE PER DAY
     Route: 064
     Dates: end: 201403

REACTIONS (5)
  - Congenital cardiovascular anomaly [Fatal]
  - Foetal exposure during pregnancy [Unknown]
  - Meningomyelocele [Fatal]
  - Ventricular septal defect [Fatal]
  - Persistent left superior vena cava [Fatal]

NARRATIVE: CASE EVENT DATE: 201403
